FAERS Safety Report 24747587 (Version 1)
Quarter: 2024Q4

REPORT INFORMATION
  Report Type: Report from Study
  Country: GB (occurrence: GB)
  Receive Date: 20241218
  Receipt Date: 20241218
  Transmission Date: 20250114
  Serious: Yes (Hospitalization)
  Sender: JOHNSON AND JOHNSON
  Company Number: GB-BAYER-2024A163684

PATIENT
  Sex: Female

DRUGS (1)
  1. ILOPROST [Suspect]
     Active Substance: ILOPROST
     Indication: Pulmonary hypertension
     Dosage: 6 TIMES A DAY
     Route: 055
     Dates: start: 20241111

REACTIONS (2)
  - Hospitalisation [Recovered/Resolved]
  - Incorrect dose administered [Unknown]
